FAERS Safety Report 14097422 (Version 1)
Quarter: 2017Q4

REPORT INFORMATION
  Report Type: Spontaneous
  Country: US (occurrence: US)
  Receive Date: 20171017
  Receipt Date: 20171017
  Transmission Date: 20180321
  Serious: No
  Sender: FDA-Public Use
  Company Number: US-WEST-WARD PHARMACEUTICALS CORP.-US-H14001-16-02907

PATIENT
  Sex: Male
  Weight: 63.56 kg

DRUGS (6)
  1. TESTOSTERONE ENANTHATE. [Suspect]
     Active Substance: TESTOSTERONE ENANTHATE
     Route: 030
     Dates: start: 2016
  2. SESAME SEED OIL [Suspect]
     Active Substance: SESAME OIL
     Indication: HORMONE REPLACEMENT THERAPY
     Route: 030
     Dates: start: 201609, end: 201612
  3. SESAME SEED OIL [Suspect]
     Active Substance: SESAME OIL
     Route: 023
     Dates: start: 2016
  4. SESAME SEED OIL [Suspect]
     Active Substance: SESAME OIL
     Route: 030
     Dates: start: 2016
  5. TESTOSTERONE ENANTHATE. [Suspect]
     Active Substance: TESTOSTERONE ENANTHATE
     Route: 059
     Dates: start: 2016
  6. TESTOSTERONE ENANTHATE. [Suspect]
     Active Substance: TESTOSTERONE ENANTHATE
     Indication: HORMONE REPLACEMENT THERAPY
     Route: 030
     Dates: start: 201609, end: 201612

REACTIONS (6)
  - Hypersensitivity [Recovered/Resolved]
  - Incorrect route of drug administration [Unknown]
  - Condition aggravated [Not Recovered/Not Resolved]
  - Dermatitis atopic [Recovered/Resolved]
  - Intentional underdose [Unknown]
  - Hypogonadism [Not Recovered/Not Resolved]

NARRATIVE: CASE EVENT DATE: 2016
